FAERS Safety Report 5367184-2 (Version None)
Quarter: 2007Q2

REPORT INFORMATION
  Report Type: 
  Country: None (occurrence: None)
  Receive Date: 20070622
  Receipt Date: 20070613
  Transmission Date: 20071010
  Serious: Yes (Life-Threatening)
  Sender: FDA-Public Use
  Company Number: MY-ASTRAZENECA-2006AP04319

PATIENT
  Age: 16720 Day
  Sex: Female

DRUGS (4)
  1. SEROQUEL [Suspect]
     Indication: MAJOR DEPRESSION
     Dosage: OVERDOSE OF THREE DAYS SUPPLY OF STUDY MEDICATION APPROX 12 TABLETS + 6 CAPSULES
     Route: 048
     Dates: start: 20060808
  2. ATENOLOL [Concomitant]
     Indication: HYPERTENSION
     Dosage: }60 DAYS PRIOR TO STUDY THERAPY.
     Route: 048
  3. CALAMINE LOTION [Concomitant]
     Indication: RASH
     Route: 061
     Dates: start: 20060905
  4. LUVOX [Concomitant]
     Indication: MAJOR DEPRESSION
     Route: 048
     Dates: start: 20060621, end: 20060722

REACTIONS (3)
  - INTENTIONAL OVERDOSE [None]
  - MAJOR DEPRESSION [None]
  - SUICIDE ATTEMPT [None]
